FAERS Safety Report 13177830 (Version 3)
Quarter: 2020Q4

REPORT INFORMATION
  Report Type: Spontaneous
  Country: US (occurrence: US)
  Receive Date: 20170201
  Receipt Date: 20201217
  Transmission Date: 20210113
  Serious: Yes (Other)
  Sender: FDA-Public Use
  Company Number: US-ASTRAZENECA-2017SE11213

PATIENT
  Age: 0 Year
  Sex: Male
  Weight: 8.2 kg

DRUGS (9)
  1. PRILOSEC [Suspect]
     Active Substance: OMEPRAZOLE MAGNESIUM
     Route: 048
  2. ZENPEP [Concomitant]
     Active Substance: PANCRELIPASE AMYLASE\PANCRELIPASE LIPASE\PANCRELIPASE PROTEASE
     Dosage: TAKE BY MOUTH WITH MEALS AND AT BEDTIME
     Route: 048
  3. ZITHROMAX [Concomitant]
     Active Substance: AZITHROMYCIN DIHYDRATE
     Dosage: 4.2 ML DAY 1 THEN 2.2 ML DAY 2 THRU 5 ONCE A DAY
  4. SYNAGIS [Suspect]
     Active Substance: PALIVIZUMAB
     Indication: RESPIRATORY SYNCYTIAL VIRUS INFECTION
     Route: 030
     Dates: start: 20161212, end: 20161212
  5. SYNAGIS [Suspect]
     Active Substance: PALIVIZUMAB
     Indication: RESPIRATORY SYNCYTIAL VIRUS INFECTION
     Route: 030
     Dates: start: 20171212, end: 20171212
  6. PROVENTIL [Concomitant]
     Active Substance: ALBUTEROL
     Indication: DYSPNOEA
     Dosage: USE 3 ML VIA NEBULIZER ONE TIME ONLY FOR 1 DOSE
     Route: 065
  7. SYNAGIS [Suspect]
     Active Substance: PALIVIZUMAB
     Indication: RESPIRATORY SYNCYTIAL VIRUS INFECTION
     Route: 030
  8. PROVENTIL [Concomitant]
     Active Substance: ALBUTEROL
     Indication: WHEEZING
     Dosage: USE 3 ML VIA NEBULIZER ONE TIME ONLY FOR 1 DOSE
     Route: 065
  9. AMOXIL [Concomitant]
     Active Substance: AMOXICILLIN
     Dosage: TAKE 4.5 ML BY MOTH TWICE DAILY FOR 10 DAYS
     Route: 048

REACTIONS (2)
  - Cystic fibrosis [Not Recovered/Not Resolved]
  - Respiratory syncytial virus test positive [Recovered/Resolved]

NARRATIVE: CASE EVENT DATE: 2016
